FAERS Safety Report 7644046-9 (Version None)
Quarter: 2011Q3

REPORT INFORMATION
  Report Type: 
  Country: None (occurrence: None)
  Receive Date: 20110729
  Receipt Date: 20110718
  Transmission Date: 20111222
  Serious: Yes (Hospitalization, Other)
  Sender: FDA-Public Use
  Company Number: FR-BRISTOL-MYERS SQUIBB COMPANY-15918675

PATIENT
  Age: 64 Year
  Sex: Male

DRUGS (8)
  1. GLUCOPHAGE [Suspect]
     Route: 048
  2. ABILIFY [Concomitant]
     Indication: EXTRAPYRAMIDAL DISORDER
     Dates: start: 20110301
  3. RISPERDAL CONSTA [Suspect]
     Route: 030
     Dates: end: 20110301
  4. ATENOLOL [Concomitant]
     Indication: MYOCARDIAL ISCHAEMIA
     Route: 048
     Dates: start: 20110401
  5. DIAMICRON [Suspect]
     Route: 048
     Dates: end: 20110101
  6. ATORVASTATIN CALCIUM [Concomitant]
     Indication: MYOCARDIAL ISCHAEMIA
     Route: 048
     Dates: start: 20110401
  7. TAMSULOSIN HCL [Suspect]
     Dosage: CAPS,PROLONGED RELEASE
     Route: 048
  8. ASPIRIN [Concomitant]
     Indication: MYOCARDIAL ISCHAEMIA
     Route: 048
     Dates: start: 20110401

REACTIONS (3)
  - RETROPERITONEAL FIBROSIS [None]
  - MYOCARDIAL ISCHAEMIA [None]
  - HYPOGLYCAEMIA [None]
